FAERS Safety Report 11801402 (Version 3)
Quarter: 2019Q3

REPORT INFORMATION
  Report Type: Spontaneous
  Country: DE (occurrence: DE)
  Receive Date: 20151204
  Receipt Date: 20190911
  Transmission Date: 20191004
  Serious: Yes (Congenital Anomaly, Other)
  Sender: FDA-Public Use
  Company Number: DE-AUROBINDO-AUR-APL-2015-10928

PATIENT
  Age: 9 Month
  Sex: Male
  Weight: 3.98 kg

DRUGS (5)
  1. LEVETIRACETAM. [Suspect]
     Active Substance: LEVETIRACETAM
     Dosage: 1000 MILLIGRAM, DAILY, 1 TRIMESTER, 0-41.6 GESTATIONAL WEEK
     Route: 064
     Dates: start: 20141011, end: 201507
  2. NOVOPULMON [Suspect]
     Active Substance: BUDESONIDE
     Indication: ASTHMA
     Dosage: 0.8 MILLIGRAM, DAILY
     Route: 064
     Dates: start: 20140927, end: 20150717
  3. FENOTEROL HYDROBROMIDE;IPRATROPIUM BROMIDE [Concomitant]
     Indication: ASTHMA
     Dosage: 1000 MILLIGRAM, ONCE A DAY, 1 TRIMESTER, 0-41.6 GESTATIONAL WEEK
     Route: 064
     Dates: start: 20141011, end: 201507
  4. LEVETIRACETAM. [Suspect]
     Active Substance: LEVETIRACETAM
     Indication: EPILEPSY
     Dosage: 1000 MILLIGRAM, DAILY
     Route: 064
     Dates: start: 20140927, end: 20150717
  5. NOVOPULMON [Suspect]
     Active Substance: BUDESONIDE
     Dosage: 0.8 MILLIGRAM, ONCE A DAY, 1 TRIMESTER, 0-41.6 GESTATIONAL WEEK.
     Route: 064
     Dates: start: 20141011, end: 201507

REACTIONS (4)
  - Pancreatic cyst [Not Recovered/Not Resolved]
  - Maternal exposure during pregnancy [Unknown]
  - Foetal exposure during pregnancy [Not Recovered/Not Resolved]
  - Congenital hydronephrosis [Not Recovered/Not Resolved]

NARRATIVE: CASE EVENT DATE: 20141011
